FAERS Safety Report 7602287-0 (Version None)
Quarter: 2011Q3

REPORT INFORMATION
  Report Type: 
  Country: None (occurrence: None)
  Receive Date: 20110711
  Receipt Date: 20110627
  Transmission Date: 20111222
  Serious: Yes (Hospitalization)
  Sender: FDA-Public Use
  Company Number: DE-MYLANLABS-2011S1013213

PATIENT
  Age: 63 Year
  Sex: Male
  Weight: 77 kg

DRUGS (4)
  1. SIMVASTATIN [Suspect]
     Indication: PRODUCT USED FOR UNKNOWN INDICATION
     Dosage: DAILY DOSE: 1 DF DOSAGE FORM EVERY DAYS
     Route: 048
     Dates: start: 20101101, end: 20101220
  2. ASPIRIN [Concomitant]
     Indication: PRODUCT USED FOR UNKNOWN INDICATION
     Route: 048
     Dates: start: 20101101, end: 20101220
  3. RAMIPRIL [Concomitant]
     Indication: HYPERTENSION
     Dosage: DAILY DOSE: 1 DF DOSAGE FORM EVERY DAYS (2.5 MG)
     Route: 048
  4. LOSARTAN POTASSIUM [Concomitant]
     Indication: HYPERTENSION
     Dosage: DAILY DOSE: 1 DF DOSAGE FORM EVERY DAYS
     Route: 048
     Dates: end: 20101220

REACTIONS (3)
  - GAIT DISTURBANCE [None]
  - MYALGIA [None]
  - BLOOD CREATINE PHOSPHOKINASE INCREASED [None]
